FAERS Safety Report 7344531-3 (Version None)
Quarter: 2011Q1

REPORT INFORMATION
  Report Type: 
  Country: None (occurrence: None)
  Receive Date: 20110308
  Receipt Date: 20110308
  Transmission Date: 20110831
  Serious: Yes (Hospitalization)
  Sender: FDA-Public Use
  Company Number: None

PATIENT
  Age: 49 Year
  Sex: Male
  Weight: 86.637 kg

DRUGS (2)
  1. FENTANYL TRANSDERMAL PATCH 75 MCG/H WATSON LABS [Suspect]
     Indication: BACK PAIN
     Dosage: 75MCG/H 1 EVERY 3 DAYS TRANSDERMAL
     Route: 062
     Dates: start: 20101222, end: 20110108
  2. FENTANYL TRANSDERMAL PATCH 50 MCG/H MYLAN [Suspect]
     Dosage: 50 MCG/H 1 EVERY 3 DAYS TRANSDERMAL
     Route: 062
     Dates: start: 20101209, end: 20101222

REACTIONS (7)
  - DYSPNOEA [None]
  - MUSCLE SPASMS [None]
  - CHILLS [None]
  - MUSCLE RIGIDITY [None]
  - ARTHRALGIA [None]
  - MYALGIA [None]
  - APPLICATION SITE PAIN [None]
